FAERS Safety Report 17450240 (Version 1)
Quarter: 2020Q1

REPORT INFORMATION
  Report Type: Spontaneous
  Country: US (occurrence: US)
  Receive Date: 20200210
  Receipt Date: 20200210
  Transmission Date: 20200409
  Serious: No
  Sender: FDA-Public Use
  Company Number: None

PATIENT
  Age: 58 Year
  Sex: Female

DRUGS (1)
  1. GLATIRAMER 40MG PFS INJ (12/BOX) [Suspect]
     Active Substance: GLATIRAMER
     Route: 058
     Dates: start: 201901

REACTIONS (9)
  - Condition aggravated [None]
  - Dysphagia [None]
  - Hypoaesthesia [None]
  - Speech disorder [None]
  - Balance disorder [None]
  - Fall [None]
  - Visual impairment [None]
  - Psoriasis [None]
  - Cognitive disorder [None]

NARRATIVE: CASE EVENT DATE: 20200210
